FAERS Safety Report 9070608 (Version 1)
Quarter: 2013Q1

REPORT INFORMATION
  Report Type: Spontaneous
  Country: US (occurrence: US)
  Receive Date: 20130206
  Receipt Date: 20130206
  Transmission Date: 20140127
  Serious: Yes (Life-Threatening)
  Sender: FDA-Public Use
  Company Number: US-009507513-0505USA01581

PATIENT
  Age: 44 Year
  Sex: Male

DRUGS (3)
  1. CANCIDAS [Suspect]
     Indication: SYSTEMIC MYCOSIS
     Dosage: UNK
     Route: 042
  2. VORICONAZOLE [Interacting]
     Indication: SYSTEMIC MYCOSIS
     Route: 042
  3. VORICONAZOLE [Interacting]
     Route: 048

REACTIONS (2)
  - Atrioventricular block complete [Recovered/Resolved]
  - Drug interaction [Unknown]
